FAERS Safety Report 8531690-X (Version None)
Quarter: 2012Q3

REPORT INFORMATION
  Report Type: 
  Country: None (occurrence: None)
  Receive Date: 20120711
  Receipt Date: 20120702
  Transmission Date: 20120928
  Serious: Yes (Other)
  Sender: FDA-Public Use
  Company Number: AUR-APL-2012-02924

PATIENT
  Age: 72 Year
  Weight: 68 kg

DRUGS (7)
  1. VENLAFAXINE HCL [Concomitant]
  2. SUXAMETHONIUM CHLORIDE (SUXAMETHONIUM CHLORIDE) [Concomitant]
  3. ONDANSETRON [Suspect]
     Indication: NAUSEA
     Dosage: 4 MG, 8 MG
  4. ONDANSETRON [Suspect]
     Indication: VOMITING
     Dosage: 4 MG, 8 MG
  5. DOMPERIDONE (DOMPERIDONE) [Concomitant]
  6. MIRTAZAPINE [Suspect]
     Indication: DEPRESSION
     Dosage: 45 MG (45 MG, 1 IN 1 D)
  7. ETOMIDATE [Suspect]

REACTIONS (3)
  - PROCEDURAL VOMITING [None]
  - DRUG INTERACTION [None]
  - PROCEDURAL NAUSEA [None]
